FAERS Safety Report 9882727 (Version 1)
Quarter: 2014Q1

REPORT INFORMATION
  Report Type: Spontaneous
  Country: US (occurrence: US)
  Receive Date: 20140207
  Receipt Date: 20140207
  Transmission Date: 20141002
  Serious: Yes (Hospitalization, Other)
  Sender: FDA-Public Use
  Company Number: PHHY2014US014790

PATIENT
  Sex: 0
  Weight: 1 kg

DRUGS (5)
  1. CICLOSPORIN [Suspect]
     Dosage: UNK
     Route: 064
  2. PREDNISONE [Suspect]
     Dosage: UNK
     Route: 064
  3. AZATHIOPRINE [Suspect]
     Dosage: UNK
     Route: 064
  4. METHYLPREDNISOLONE [Suspect]
     Dosage: UNK
     Route: 064
  5. ATENOLOL [Suspect]
     Route: 064

REACTIONS (12)
  - Failure to thrive [Unknown]
  - Apnoea [Unknown]
  - Muscle tone disorder [Unknown]
  - Neutropenia [Unknown]
  - Polycythaemia [Unknown]
  - Dyspnoea [Unknown]
  - Hyperbilirubinaemia [Unknown]
  - Thrombocytopenia [Unknown]
  - Immunosuppressant drug level increased [Unknown]
  - Premature baby [Unknown]
  - Low birth weight baby [Unknown]
  - Foetal exposure during pregnancy [Unknown]
